FAERS Safety Report 5673589-2 (Version None)
Quarter: 2008Q1

REPORT INFORMATION
  Report Type: 
  Country: None (occurrence: None)
  Receive Date: 20080319
  Receipt Date: 20070911
  Transmission Date: 20080703
  Serious: Yes (Congenital Anomaly, Other)
  Sender: FDA-Public Use
  Company Number: GB-BOEHRINGER INGELHEIM GMBH, GERMANY-2006-UK-03692UK

PATIENT
  Sex: Male

DRUGS (2)
  1. VIRAMUNE [Suspect]
     Route: 048
     Dates: start: 20060717
  2. COMBIVIR [Suspect]
     Indication: HIV INFECTION
     Route: 064
     Dates: start: 20060717

REACTIONS (9)
  - ASCITES [None]
  - CARDIOMYOPATHY [None]
  - CYTOMEGALOVIRUS INFECTION [None]
  - DEVELOPMENTAL DELAY [None]
  - DRUG EXPOSURE DURING PREGNANCY [None]
  - FOETAL-MATERNAL HAEMORRHAGE [None]
  - HAEMOGLOBIN DECREASED [None]
  - HYDROPS FOETALIS [None]
  - PERICARDIAL EFFUSION [None]
